FAERS Safety Report 7078893-1 (Version None)
Quarter: 2010Q4

REPORT INFORMATION
  Report Type: 
  Country: None (occurrence: None)
  Receive Date: 20101102
  Receipt Date: 20101030
  Transmission Date: 20110411
  Serious: No
  Sender: FDA-Public Use
  Company Number: US-PFIZER INC-2010138366

PATIENT
  Sex: Female

DRUGS (4)
  1. CHANTIX [Suspect]
     Indication: SMOKING CESSATION THERAPY
     Dosage: 1 MG, 2X/DAY
     Route: 048
     Dates: start: 20101020, end: 20101029
  2. OXYCODONE [Concomitant]
     Indication: PAIN
     Dosage: UNK
  3. SOMA [Concomitant]
     Indication: PAIN
     Dosage: UNK
  4. LYRICA [Concomitant]
     Indication: PAIN
     Dosage: UNK

REACTIONS (1)
  - NAUSEA [None]
